FAERS Safety Report 8585110-X (Version None)
Quarter: 2012Q3

REPORT INFORMATION
  Report Type: 
  Country: None (occurrence: None)
  Receive Date: 20120810
  Receipt Date: 20120730
  Transmission Date: 20120928
  Serious: Yes (Other)
  Sender: FDA-Public Use
  Company Number: DE-GENZYME-THYM-1003319

PATIENT
  Sex: Male
  Weight: 70 kg

DRUGS (6)
  1. SOLU-DACORTIN [Concomitant]
     Indication: TRANSPLANT
     Dosage: 500 MG, UNK
     Route: 065
     Dates: start: 20120624
  2. CYMEVEN [Concomitant]
     Indication: TRANSPLANT
     Dosage: 100 MG, UNK
     Route: 065
     Dates: start: 20120624, end: 20120629
  3. THYMOGLOBULIN [Suspect]
     Indication: RENAL TRANSPLANT
     Dosage: 100 MG, ONCE
     Route: 065
     Dates: start: 20120624, end: 20120624
  4. ARMODAFINIL [Concomitant]
     Indication: TRANSPLANT
     Dosage: 100 MG, UNK
     Route: 065
     Dates: start: 20120624, end: 20120627
  5. KYBERNIN [Concomitant]
     Indication: TRANSPLANT
     Dosage: 1.500 MG, UNK
     Route: 065
     Dates: start: 20120624, end: 20120701
  6. ROCEPHIN [Concomitant]
     Indication: TRANSPLANT
     Dosage: 2 G, UNK
     Route: 061
     Dates: start: 20120624, end: 20120626

REACTIONS (5)
  - HAEMORRHAGE SUBCUTANEOUS [None]
  - PANCREATITIS HAEMORRHAGIC [None]
  - TRANSPLANT FAILURE [None]
  - THROMBOCYTOPENIA [None]
  - RHABDOMYOLYSIS [None]
